FAERS Safety Report 17874912 (Version 1)
Quarter: 2020Q2

REPORT INFORMATION
  Report Type: Spontaneous
  Country: US (occurrence: US)
  Receive Date: 20200609
  Receipt Date: 20200609
  Transmission Date: 20200714
  Serious: No
  Sender: FDA-Public Use
  Company Number: US-PFIZER INC-2019496732

PATIENT
  Age: 36 Year
  Sex: Female

DRUGS (1)
  1. LYRICA [Suspect]
     Active Substance: PREGABALIN
     Dosage: 100 MG, 2X/DAY (EVERY 12 HOURS FOR 90 DAYS)
     Route: 048

REACTIONS (4)
  - Malaise [Unknown]
  - Drug ineffective [Unknown]
  - Intentional product use issue [Unknown]
  - Incorrect dose administered [Unknown]
